FAERS Safety Report 9285837 (Version 4)
Quarter: 2013Q3

REPORT INFORMATION
  Report Type: Spontaneous
  Country: JP (occurrence: JP)
  Receive Date: 20130513
  Receipt Date: 20130702
  Transmission Date: 20140515
  Serious: Yes (Life-Threatening, Other)
  Sender: FDA-Public Use
  Company Number: JP-009507513-2011SP038579

PATIENT
  Age: 10 Year
  Sex: Male
  Weight: 41 kg

DRUGS (15)
  1. BRIDION [Suspect]
     Indication: NEUROMUSCULAR BLOCKADE REVERSAL
     Dosage: 200 MG, ONCE
     Route: 042
     Dates: start: 20110815, end: 20110815
  2. ESLAX [Suspect]
     Indication: NEUROMUSCULAR BLOCKING THERAPY
     Dosage: 40 MG, UNK
     Route: 042
     Dates: start: 20110815, end: 20110815
  3. SEVOFLURANE [Concomitant]
     Indication: GENERAL ANAESTHESIA
     Dosage: 10:05
     Dates: start: 20110815, end: 20110815
  4. REMIFENTANIL HYDROCHLORIDE [Concomitant]
     Indication: GENERAL ANAESTHESIA
     Dosage: 10:05
     Route: 042
     Dates: start: 20110815, end: 20110815
  5. FENTANYL CITRATE [Concomitant]
     Indication: GENERAL ANAESTHESIA
     Dosage: 100 ?G, UNK
     Route: 042
     Dates: start: 20110815, end: 20110815
  6. FLUMARIN [Concomitant]
     Indication: INFECTION PROPHYLAXIS
     Dosage: 10:30
     Route: 041
     Dates: start: 20110815, end: 20110815
  7. LIDOCAINE [Concomitant]
     Indication: LOCAL ANAESTHESIA
     Dosage: 10:43
     Route: 042
     Dates: start: 20110815, end: 20110815
  8. KIPRES [Concomitant]
     Indication: ASTHMA
     Dosage: UNK
     Dates: start: 201107, end: 20110815
  9. CLARITIN [Concomitant]
     Indication: ASTHMA
     Dosage: UNK
     Dates: start: 201107, end: 20110815
  10. C CYSTEN [Concomitant]
     Indication: ASTHMA
     Dosage: UNK
     Dates: start: 201107, end: 20110815
  11. ASTOMARI [Concomitant]
     Indication: ASTHMA
     Dosage: UNK
     Dates: start: 201107, end: 20110815
  12. MUCOSOLVAN [Concomitant]
     Indication: ASTHMA
     Dosage: UNK
     Dates: start: 201107, end: 20110815
  13. NEOMALLERMIN TR [Concomitant]
     Indication: ASTHMA
     Dosage: UNK
     Dates: start: 201107, end: 20110815
  14. SEKINARIN [Concomitant]
     Indication: ASTHMA
     Dosage: UNK
     Dates: start: 201107, end: 20110815
  15. PREDNISOLONE [Concomitant]
     Indication: ASTHMA
     Dosage: UNK
     Dates: start: 201107, end: 20110815

REACTIONS (6)
  - Bronchospasm [Recovering/Resolving]
  - Respiratory failure [Recovered/Resolved]
  - Wheezing [Recovered/Resolved]
  - Oxygen saturation decreased [Recovered/Resolved]
  - Anaphylactic shock [Recovered/Resolved]
  - Erythema [Recovered/Resolved]
